FAERS Safety Report 4848129-8 (Version None)
Quarter: 2005Q4

REPORT INFORMATION
  Report Type: 
  Country: None (occurrence: None)
  Receive Date: 20051208
  Receipt Date: 20051020
  Transmission Date: 20060501
  Serious: Yes (Death, Life-Threatening)
  Sender: FDA-Public Use
  Company Number: JP-AVENTIS-200519308GDDC

PATIENT
  Age: 70 Year
  Sex: Male

DRUGS (9)
  1. MINIRIN [Suspect]
     Indication: DIABETES INSIPIDUS
     Route: 045
     Dates: start: 20051003, end: 20051004
  2. VALPROATE SODIUM [Concomitant]
     Route: 048
     Dates: start: 20050501, end: 20051004
  3. CLARITHROMYCIN [Concomitant]
     Route: 048
     Dates: start: 20050501, end: 20051004
  4. BETAMETHASONE [Concomitant]
     Route: 048
     Dates: start: 20050501, end: 20051004
  5. DOPAMINE HCL [Concomitant]
     Route: 042
     Dates: start: 20050928, end: 20051004
  6. MOSAPRIDE CITRATE [Concomitant]
     Route: 048
     Dates: start: 20050501, end: 20051004
  7. MAGNESIUM OXIDE [Concomitant]
     Route: 048
     Dates: start: 20050501, end: 20051004
  8. FLOMOXEF SODIUM [Concomitant]
     Route: 042
     Dates: start: 20050928, end: 20051004
  9. CLOBAZAM [Concomitant]

REACTIONS (6)
  - BLOOD SODIUM INCREASED [None]
  - DYSPNOEA [None]
  - HICCUPS [None]
  - RESPIRATORY ARREST [None]
  - SHOCK [None]
  - VOMITING [None]
